FAERS Safety Report 4983245-1 (Version None)
Quarter: 2006Q2

REPORT INFORMATION
  Report Type: 
  Country: None (occurrence: None)
  Receive Date: 20060419
  Receipt Date: 20060405
  Transmission Date: 20061013
  Serious: Yes (Death, Other)
  Sender: FDA-Public Use
  Company Number: US017160

PATIENT
  Age: 57 Year
  Sex: Male

DRUGS (5)
  1. TRISENOX [Suspect]
     Indication: ACUTE PROMYELOCYTIC LEUKAEMIA
     Dosage: 9.45 MG QD INTRAVENOUS
     Route: 042
     Dates: start: 20051110, end: 20060108
  2. BEZAFIBRATE [Suspect]
     Dosage: 400 MG QD ORAL
     Route: 048
     Dates: start: 20051110, end: 20051118
  3. BEZAFIBRATE [Suspect]
     Dosage: 400 MG QD ORAL
     Route: 048
     Dates: start: 20051125, end: 20060119
  4. FLUCONAZOLE [Concomitant]
  5. TRETINOIN [Concomitant]

REACTIONS (2)
  - INFECTION [None]
  - VENTRICULAR TACHYCARDIA [None]
